FAERS Safety Report 25520766 (Version 2)
Quarter: 2025Q3

REPORT INFORMATION
  Report Type: Spontaneous
  Country: EU (occurrence: EU)
  Receive Date: 20250705
  Receipt Date: 20250717
  Transmission Date: 20251020
  Serious: Yes (Other)
  Sender: CELLTRION
  Company Number: None

PATIENT

DRUGS (5)
  1. YUFLYMA [Suspect]
     Active Substance: ADALIMUMAB-AATY
     Indication: Rheumatoid arthritis
     Route: 058
     Dates: start: 202307, end: 202502
  2. YUFLYMA [Suspect]
     Active Substance: ADALIMUMAB-AATY
     Indication: Uveitis
  3. METHOTREXATE SODIUM [Concomitant]
     Active Substance: METHOTREXATE SODIUM
     Indication: Rheumatoid arthritis
     Route: 058
     Dates: start: 2017
  4. FOLIC ACID [Concomitant]
     Active Substance: FOLIC ACID
     Indication: Rheumatoid arthritis
     Dates: start: 2017
  5. CHOLECALCIFEROL [Concomitant]
     Active Substance: CHOLECALCIFEROL
     Indication: Osteopenia
     Route: 048
     Dates: start: 2017

REACTIONS (5)
  - Iridocyclitis [Not Recovered/Not Resolved]
  - Eye pain [Not Recovered/Not Resolved]
  - Photophobia [Not Recovered/Not Resolved]
  - Therapy non-responder [Unknown]
  - Drug ineffective [Unknown]

NARRATIVE: CASE EVENT DATE: 20230701
